FAERS Safety Report 24596198 (Version 1)
Quarter: 2024Q4

REPORT INFORMATION
  Report Type: Spontaneous
  Country: CN (occurrence: CN)
  Receive Date: 20241110
  Receipt Date: 20241110
  Transmission Date: 20250114
  Serious: Yes (Hospitalization)
  Sender: JOHNSON AND JOHNSON
  Company Number: CN-JNJFOC-20241111701

PATIENT
  Age: 35 Year
  Sex: Male
  Weight: 72 kg

DRUGS (6)
  1. RISPERDAL [Suspect]
     Active Substance: RISPERIDONE
     Indication: Schizophrenia
     Route: 048
     Dates: start: 20211001, end: 20241018
  2. RISPERDAL [Suspect]
     Active Substance: RISPERIDONE
     Indication: Mania
  3. CLOZAPINE [Suspect]
     Active Substance: CLOZAPINE
     Indication: Mania
     Route: 048
     Dates: start: 20211001, end: 20241018
  4. CLOZAPINE [Suspect]
     Active Substance: CLOZAPINE
     Indication: Schizophrenia
  5. VALPROATE MAGNESIUM [Suspect]
     Active Substance: VALPROATE MAGNESIUM
     Indication: Mania
     Dosage: 1 TABLET
     Route: 048
     Dates: start: 20211001, end: 20241018
  6. VALPROATE MAGNESIUM [Suspect]
     Active Substance: VALPROATE MAGNESIUM
     Indication: Schizophrenia

REACTIONS (2)
  - Glucose tolerance impaired [Recovering/Resolving]
  - Liver abscess [Unknown]

NARRATIVE: CASE EVENT DATE: 20241010
